FAERS Safety Report 23371970 (Version 1)
Quarter: 2024Q1

REPORT INFORMATION
  Report Type: Spontaneous
  Country: US (occurrence: US)
  Receive Date: 20240105
  Receipt Date: 20240105
  Transmission Date: 20240410
  Serious: No
  Sender: FDA-Public Use
  Company Number: US-VIIV HEALTHCARE LIMITED-US2023AMR180598

PATIENT
  Age: 52 Year
  Sex: Female

DRUGS (3)
  1. RILPIVIRINE [Suspect]
     Active Substance: RILPIVIRINE
     Indication: HIV infection
     Dosage: UNK UNK, Q2M, 600 MG/ 900 MG EVERY 2 MONTHS
     Route: 065
     Dates: start: 20231103
  2. CABOTEGRAVIR [Suspect]
     Active Substance: CABOTEGRAVIR
     Indication: HIV infection
     Dosage: UNK UNK, Q2M, 600 MG/ 900 MG EVERY 2 MONTHS
     Route: 065
     Dates: start: 20231103
  3. DOVATO [Suspect]
     Active Substance: DOLUTEGRAVIR SODIUM\LAMIVUDINE
     Indication: Product used for unknown indication
     Dosage: UNK, 50/ 300 MG
     Route: 065

REACTIONS (3)
  - Musculoskeletal discomfort [Unknown]
  - Papule [Unknown]
  - Injury [Unknown]
